FAERS Safety Report 10885331 (Version 1)
Quarter: 2015Q1

REPORT INFORMATION
  Report Type: Spontaneous
  Country: US (occurrence: None)
  Receive Date: 20150227
  Receipt Date: 20150227
  Transmission Date: 20150721
  Serious: Yes (Hospitalization)
  Sender: FDA-Public Use
  Company Number: 2757251

PATIENT
  Age: 54 Year
  Sex: Female

DRUGS (7)
  1. GEMCITABINE HYDROCHLORIDE. [Suspect]
     Active Substance: GEMCITABINE HYDROCHLORIDE
     Indication: INVASIVE DUCTAL BREAST CARCINOMA
  2. VINORELBINE [Concomitant]
     Active Substance: VINORELBINE\VINORELBINE TARTRATE
  3. GEMCITABINE HYDROCHLORIDE. [Suspect]
     Active Substance: GEMCITABINE HYDROCHLORIDE
     Indication: BREAST CANCER METASTATIC
  4. ERIBULIN [Concomitant]
     Active Substance: ERIBULIN
  5. BEVACIZUMAB [Concomitant]
     Active Substance: BEVACIZUMAB
  6. PACLITAXEL. [Concomitant]
     Active Substance: PACLITAXEL
  7. CISPLATIN. [Concomitant]
     Active Substance: CISPLATIN

REACTIONS (3)
  - Leukocytosis [None]
  - Myositis [None]
  - Radiation injury [None]
